FAERS Safety Report 5591067-6 (Version None)
Quarter: 2008Q1

REPORT INFORMATION
  Report Type: 
  Country: None (occurrence: None)
  Receive Date: 20080115
  Receipt Date: 20080111
  Transmission Date: 20080703
  Serious: Yes (Death)
  Sender: FDA-Public Use
  Company Number: PHRM2008FR00532

PATIENT
  Age: 74 Year
  Sex: Male

DRUGS (4)
  1. PEGINTERFERON ALFA-2A [Concomitant]
     Indication: CHRONIC MYELOID LEUKAEMIA
     Dosage: 180 UG, QW
     Route: 058
     Dates: start: 20040430, end: 20050501
  2. GLEEVEC [Suspect]
     Indication: CHRONIC MYELOID LEUKAEMIA
     Dosage: 400 MG, QD
     Route: 048
     Dates: start: 20040430, end: 20051219
  3. GLEEVEC [Suspect]
     Dosage: 600 MG DAILY
     Route: 048
     Dates: start: 20051220, end: 20061123
  4. GLEEVEC [Suspect]
     Dosage: 400 MG DAILY
     Route: 048
     Dates: start: 20061124, end: 20070425

REACTIONS (1)
  - ACUTE MYELOID LEUKAEMIA [None]
